FAERS Safety Report 4677264-2 (Version None)
Quarter: 2005Q2

REPORT INFORMATION
  Report Type: 
  Country: None (occurrence: None)
  Receive Date: 20050526
  Receipt Date: 20050516
  Transmission Date: 20051028
  Serious: Yes (Hospitalization)
  Sender: FDA-Public Use
  Company Number: 11155

PATIENT
  Age: 71 Year
  Sex: Female

DRUGS (4)
  1. AMIODARONE HCL [Suspect]
     Indication: SINUS ARRHYTHMIA
     Dosage: 200 MG
     Route: 048
     Dates: start: 20031009, end: 20030406
  2. ACETYLSALICYLIC ACID [Concomitant]
  3. LANSOPRAZOLE [Concomitant]
  4. SPIRONOLACTONE [Concomitant]

REACTIONS (1)
  - HYPOTHYROIDISM [None]
